FAERS Safety Report 7221793-4 (Version None)
Quarter: 2011Q1

REPORT INFORMATION
  Report Type: 
  Country: None (occurrence: None)
  Receive Date: 20110112
  Receipt Date: 20101230
  Transmission Date: 20110831
  Serious: Yes (Death, Life-Threatening, Hospitalization)
  Sender: FDA-Public Use
  Company Number: FR-KINGPHARMUSA00001-K201001398

PATIENT
  Age: 80 Year
  Sex: Male

DRUGS (7)
  1. BELOC ZOK [Concomitant]
     Indication: HYPERTENSION
  2. ACETYLSALICYLIC ACID [Concomitant]
     Indication: CORONARY ARTERY DISEASE
  3. LASIX [Concomitant]
     Indication: HYPERTENSION
  4. DIGITOXIN [Suspect]
  5. GLIMEPIRIDE [Concomitant]
     Indication: DIABETES MELLITUS
  6. ALTACE [Suspect]
     Indication: HYPERTENSION
     Dosage: UNK
     Route: 048
     Dates: start: 20101029
  7. ISOSORBIDE DINITRATE [Concomitant]
     Indication: CORONARY ARTERY DISEASE

REACTIONS (8)
  - OBSTRUCTIVE AIRWAYS DISORDER [None]
  - DYSPNOEA [None]
  - PHARYNGEAL OEDEMA [None]
  - ASPHYXIA [None]
  - RESPIRATORY TRACT OEDEMA [None]
  - TONGUE OEDEMA [None]
  - ANGIOEDEMA [None]
  - HYPOXIC-ISCHAEMIC ENCEPHALOPATHY [None]
